APPROVED DRUG PRODUCT: OCTREOTIDE ACETATE
Active Ingredient: OCTREOTIDE ACETATE
Strength: EQ 0.2MG BASE/ML
Dosage Form/Route: INJECTABLE;INJECTION
Application: A076330 | Product #001 | TE Code: AP
Applicant: WEST-WARD PHARMACEUTICALS INTERNATIONAL LTD
Approved: Apr 8, 2005 | RLD: No | RS: Yes | Type: RX